FAERS Safety Report 16474627 (Version 1)
Quarter: 2019Q2

REPORT INFORMATION
  Report Type: Spontaneous
  Country: US (occurrence: US)
  Receive Date: 20190515
  Receipt Date: 20190515
  Transmission Date: 20190711
  Serious: Yes (Other)
  Sender: FDA-Public Use
  Company Number: None

PATIENT
  Age: 79 Year
  Sex: Female

DRUGS (18)
  1. GABAPENTIN. [Concomitant]
     Active Substance: GABAPENTIN
  2. SPIRONOLACTONE. [Concomitant]
     Active Substance: SPIRONOLACTONE
  3. NORCO [Concomitant]
     Active Substance: ACETAMINOPHEN\HYDROCODONE BITARTRATE
  4. BISACODYL. [Concomitant]
     Active Substance: BISACODYL
  5. TORSEMIDE. [Concomitant]
     Active Substance: TORSEMIDE
  6. SIMVASTATIN. [Concomitant]
     Active Substance: SIMVASTATIN
  7. LETAIRIS [Suspect]
     Active Substance: AMBRISENTAN
     Indication: HEART DISEASE CONGENITAL
     Route: 048
     Dates: start: 201809
  8. LEVOTHYROXINE. [Concomitant]
     Active Substance: LEVOTHYROXINE
  9. POTASSIUM CHLORIDE. [Concomitant]
     Active Substance: POTASSIUM CHLORIDE
  10. ALBUTEROL HFA [Concomitant]
     Active Substance: ALBUTEROL SULFATE
  11. ASPIRIN. [Concomitant]
     Active Substance: ASPIRIN
  12. BRIMONIDINE [Concomitant]
     Active Substance: BRIMONIDINE TARTRATE
  13. DIGOXIN. [Concomitant]
     Active Substance: DIGOXIN
  14. ATORVASTATIN [Concomitant]
     Active Substance: ATORVASTATIN
  15. TRIAMCINOLONE [Concomitant]
     Active Substance: TRIAMCINOLONE
  16. CALCITONIN [Concomitant]
     Active Substance: CALCITONIN
  17. LATANOPROST. [Concomitant]
     Active Substance: LATANOPROST
  18. SILDENAFIL. [Concomitant]
     Active Substance: SILDENAFIL

REACTIONS (3)
  - Fall [None]
  - Groin pain [None]
  - Arthralgia [None]

NARRATIVE: CASE EVENT DATE: 20190425
